FAERS Safety Report 24587294 (Version 4)
Quarter: 2025Q4

REPORT INFORMATION
  Report Type: Spontaneous
  Country: EU (occurrence: EU)
  Receive Date: 20241107
  Receipt Date: 20251210
  Transmission Date: 20260118
  Serious: Yes (Other)
  Sender: AUROBINDO
  Company Number: EU-002147023-NVSC2024PL188067

PATIENT
  Age: 53 Year
  Sex: Male

DRUGS (3)
  1. IMATINIB [Suspect]
     Active Substance: IMATINIB
     Indication: Chronic myeloid leukaemia
     Dosage: 400 MILLIGRAM, ONCE A DAY (QD)
     Dates: start: 2010
  2. IMATINIB [Suspect]
     Active Substance: IMATINIB
     Dosage: 100 MILLIGRAM, ONCE A DAY (QD)
     Dates: start: 202205
  3. NILOTINIB [Concomitant]
     Active Substance: NILOTINIB
     Indication: Chronic myeloid leukaemia
     Dosage: UNK
     Route: 065

REACTIONS (17)
  - Granulomatosis with polyangiitis [Unknown]
  - Exercise tolerance decreased [Unknown]
  - Weight decreased [Unknown]
  - Purpura [Unknown]
  - Henoch-Schonlein purpura [Unknown]
  - Normocytic anaemia [Unknown]
  - Thrombocytosis [Unknown]
  - Neutropenia [Unknown]
  - Anaemia [Unknown]
  - Myalgia [Unknown]
  - Arthralgia [Unknown]
  - Rash [Unknown]
  - Asthenia [Unknown]
  - Dermatitis [Unknown]
  - Rash erythematous [Unknown]
  - Rash maculo-papular [Unknown]
  - Weight increased [Unknown]

NARRATIVE: CASE EVENT DATE: 20220101
